FAERS Safety Report 10678075 (Version 2)
Quarter: 2014Q4

REPORT INFORMATION
  Report Type: Spontaneous
  Country: US (occurrence: US)
  Receive Date: 20141229
  Receipt Date: 20141229
  Transmission Date: 20150529
  Serious: Yes (Hospitalization, Other)
  Sender: FDA-Public Use
  Company Number: US-AUROBINDO-AUR-APL-2014-12968

PATIENT
  Age: 53 Year
  Sex: Female

DRUGS (1)
  1. LEVOFLOXACIN. [Suspect]
     Active Substance: LEVOFLOXACIN
     Indication: CELLULITIS
     Dosage: UNK
     Route: 065

REACTIONS (10)
  - Lymphadenopathy [Recovered/Resolved]
  - Tendon rupture [Recovered/Resolved]
  - Abscess [Recovered/Resolved]
  - Haematoma [Recovered/Resolved]
  - Skin mass [Recovered/Resolved]
  - Clostridium bacteraemia [Recovered/Resolved]
  - Pain [Recovered/Resolved]
  - Oedema [Recovered/Resolved]
  - Purulence [Recovered/Resolved]
  - Condition aggravated [Recovered/Resolved]
